FAERS Safety Report 25976858 (Version 1)
Quarter: 2025Q4

REPORT INFORMATION
  Report Type: Spontaneous
  Country: US (occurrence: US)
  Receive Date: 20251029
  Receipt Date: 20251029
  Transmission Date: 20260118
  Serious: No
  Sender: ETON PHARMACEUTICALS, INC
  Company Number: US-IPSEN Group, Research and Development-2024-26820

PATIENT

DRUGS (7)
  1. INCRELEX [Suspect]
     Active Substance: MECASERMIN
     Indication: Lipodystrophy acquired
     Dosage: AS DIRECTED
     Route: 058
  2. INCRELEX [Suspect]
     Active Substance: MECASERMIN
     Indication: Off label use
  3. INCRELEX [Suspect]
     Active Substance: MECASERMIN
     Indication: Off label use
  4. JARDIANCE [Concomitant]
     Active Substance: EMPAGLIFLOZIN
  5. METFORMIN [Concomitant]
     Active Substance: METFORMIN HYDROCHLORIDE
  6. ENALAPRIL [Concomitant]
     Active Substance: ENALAPRIL
  7. CHILDRENS CHEWABLE VITAMINS [Concomitant]

REACTIONS (3)
  - Off label use [Unknown]
  - Off label use [Unknown]
  - Off label use [Unknown]
